FAERS Safety Report 9559649 (Version 1)
Quarter: 2013Q3

REPORT INFORMATION
  Report Type: Spontaneous
  Country: US (occurrence: None)
  Receive Date: 20130924
  Receipt Date: 20130924
  Transmission Date: 20140515
  Serious: Yes (Death)
  Sender: FDA-Public Use
  Company Number: 1903724

PATIENT
  Sex: 0

DRUGS (1)
  1. HEPARIN [Suspect]
     Indication: EMBOLISM VENOUS
     Route: 041

REACTIONS (2)
  - Retroperitoneal haemorrhage [None]
  - Renal failure acute [None]
